FAERS Safety Report 6746988-5 (Version None)
Quarter: 2010Q2

REPORT INFORMATION
  Report Type: 
  Country: None (occurrence: None)
  Receive Date: 20100528
  Receipt Date: 20100519
  Transmission Date: 20101027
  Serious: Yes (Hospitalization)
  Sender: FDA-Public Use
  Company Number: ES-JNJFOC-20100505044

PATIENT
  Age: 49 Year
  Sex: Female

DRUGS (8)
  1. REMICADE [Suspect]
     Indication: RHEUMATOID ARTHRITIS
     Route: 042
  2. REMICADE [Suspect]
     Route: 042
  3. METHOTREXATE [Concomitant]
  4. GLIMEPIRIDE [Concomitant]
     Route: 048
  5. ATACAND HCT [Concomitant]
     Route: 048
  6. CRESTOR [Concomitant]
     Route: 048
  7. ADIRO [Concomitant]
  8. ARTRINOVO [Concomitant]
     Route: 048

REACTIONS (8)
  - ACUTE MYELOID LEUKAEMIA [None]
  - ADVERSE EVENT [None]
  - ASTHENIA [None]
  - LUNG NEOPLASM [None]
  - MUSCULOSKELETAL PAIN [None]
  - PNEUMONIA PNEUMOCOCCAL [None]
  - PYREXIA [None]
  - SEPTIC SHOCK [None]
